FAERS Safety Report 5558129-0 (Version None)
Quarter: 2007Q4

REPORT INFORMATION
  Report Type: 
  Country: None (occurrence: None)
  Receive Date: 20071214
  Receipt Date: 20071205
  Transmission Date: 20080405
  Serious: Yes (Hospitalization)
  Sender: FDA-Public Use
  Company Number: IT-PFIZER INC-2007102790

PATIENT
  Sex: Female

DRUGS (7)
  1. TORVAST [Suspect]
     Indication: HYPERLIPIDAEMIA
     Route: 048
     Dates: start: 20070831, end: 20071027
  2. ACETYLSALICYLIC ACID SRT [Suspect]
     Indication: ACUTE MYOCARDIAL INFARCTION
     Route: 048
     Dates: start: 20070831, end: 20071027
  3. TICLID [Suspect]
     Indication: ACUTE MYOCARDIAL INFARCTION
     Route: 048
     Dates: start: 20070831, end: 20071027
  4. RAMIPRIL [Concomitant]
     Route: 048
  5. MITTOVAL [Concomitant]
     Route: 048
  6. OMEPRAZOLE [Concomitant]
     Route: 048
  7. MODURETIC 5-50 [Concomitant]
     Route: 048

REACTIONS (4)
  - DERMATITIS [None]
  - ERYTHEMA [None]
  - PRURITUS [None]
  - SKIN BURNING SENSATION [None]
